FAERS Safety Report 7527248-1 (Version None)
Quarter: 2011Q2

REPORT INFORMATION
  Report Type: 
  Country: None (occurrence: None)
  Receive Date: 20110607
  Receipt Date: 20110531
  Transmission Date: 20111010
  Serious: Yes (Other)
  Sender: FDA-Public Use
  Company Number: US-BIOGENIDEC-2011BI018978

PATIENT
  Age: 40 Year
  Sex: Male

DRUGS (1)
  1. AVONEX [Suspect]
     Indication: MULTIPLE SCLEROSIS
     Route: 030
     Dates: start: 20100622, end: 20110411

REACTIONS (5)
  - NASOPHARYNGITIS [None]
  - INFLUENZA LIKE ILLNESS [None]
  - DIZZINESS [None]
  - CONVULSION [None]
  - DRUG INTERACTION [None]
